FAERS Safety Report 7565865-3 (Version None)
Quarter: 2011Q2

REPORT INFORMATION
  Report Type: 
  Country: None (occurrence: None)
  Receive Date: 20110623
  Receipt Date: 20110616
  Transmission Date: 20111010
  Serious: Yes (Other)
  Sender: FDA-Public Use
  Company Number: US-PFIZER INC-2011061721

PATIENT
  Sex: Male

DRUGS (1)
  1. CHANTIX [Suspect]
     Indication: SMOKING CESSATION THERAPY
     Dosage: STARTER PACK
     Dates: start: 20080111, end: 20080125

REACTIONS (9)
  - AMNESIA [None]
  - PERSONALITY DISORDER [None]
  - PANIC ATTACK [None]
  - NIGHTMARE [None]
  - MOOD SWINGS [None]
  - ANXIETY [None]
  - SUICIDAL IDEATION [None]
  - INSOMNIA [None]
  - DEPRESSION [None]
